FAERS Safety Report 20420901 (Version 1)
Quarter: 2022Q1

REPORT INFORMATION
  Report Type: Spontaneous
  Country: US (occurrence: None)
  Receive Date: 20220203
  Receipt Date: 20220203
  Transmission Date: 20220424
  Serious: Yes (Other)
  Sender: FDA-Public Use
  Company Number: None

PATIENT
  Age: 41 Year
  Sex: Female
  Weight: 62.6 kg

DRUGS (1)
  1. MOLNUPIRAVIR [Suspect]
     Active Substance: MOLNUPIRAVIR
     Indication: COVID-19
     Dosage: FREQUENCY : TWICE A DAY;?
     Route: 048
     Dates: start: 20220125, end: 20220128

REACTIONS (6)
  - Rash [None]
  - Product dose omission issue [None]
  - Pruritus [None]
  - Pain [None]
  - Urticaria [None]
  - Blood blister [None]

NARRATIVE: CASE EVENT DATE: 20220128
